FAERS Safety Report 4443319-0 (Version None)
Quarter: 2004Q3

REPORT INFORMATION
  Report Type: 
  Country: None (occurrence: None)
  Receive Date: 20040908
  Receipt Date: 20040901
  Transmission Date: 20050211
  Serious: Yes (Hospitalization)
  Sender: FDA-Public Use
  Company Number: 200412834JP

PATIENT
  Age: 60 Year
  Sex: Female
  Weight: 52 kg

DRUGS (2)
  1. ARAVA [Suspect]
     Route: 048
     Dates: start: 20030924, end: 20031227
  2. ROCALTROL [Concomitant]
     Indication: OSTEOPOROSIS
     Route: 048
     Dates: start: 20010306, end: 20031227

REACTIONS (1)
  - UTERINE CANCER [None]
